FAERS Safety Report 25274464 (Version 1)
Quarter: 2025Q2

REPORT INFORMATION
  Report Type: Spontaneous
  Country: US (occurrence: None)
  Receive Date: 20250506
  Receipt Date: 20250506
  Transmission Date: 20250716
  Serious: Yes (Other)
  Sender: INCYTE
  Company Number: US-002147023-NVSC2025US067359

PATIENT
  Age: 11 Year

DRUGS (6)
  1. JAKAFI [Suspect]
     Active Substance: RUXOLITINIB
     Indication: Diarrhoea
     Dosage: 12.5 MG, BID
     Route: 065
  2. JAKAFI [Suspect]
     Active Substance: RUXOLITINIB
     Dosage: 10 MG, BID
     Route: 065
  3. JAKAFI [Suspect]
     Active Substance: RUXOLITINIB
     Dosage: 12.5 MG, QD (QAM)
     Route: 065
  4. JAKAFI [Suspect]
     Active Substance: RUXOLITINIB
     Dosage: 10 MG, QD (QPM)
     Route: 065
  5. PREDNISONE [Concomitant]
     Active Substance: PREDNISONE
     Indication: Transplant failure
     Route: 065
  6. SIROLIMUS [Concomitant]
     Active Substance: SIROLIMUS
     Indication: Transplant failure
     Route: 065

REACTIONS (2)
  - Drug effective for unapproved indication [Unknown]
  - Thrombocytopenia [Recovered/Resolved]
